FAERS Safety Report 24873943 (Version 1)
Quarter: 2025Q1

REPORT INFORMATION
  Report Type: Spontaneous
  Country: US (occurrence: None)
  Receive Date: 20250121
  Receipt Date: 20250121
  Transmission Date: 20250409
  Serious: Yes (Hospitalization)
  Sender: FDA-CTU
  Company Number: None

PATIENT
  Sex: Female

DRUGS (2)
  1. MEKTOVI [Suspect]
     Active Substance: BINIMETINIB
     Dosage: FREQUENCY : TWICE A DAY;?
     Route: 048
  2. BRAFTOVI [Suspect]
     Active Substance: ENCORAFENIB

REACTIONS (3)
  - Ulcer [None]
  - Vomiting [None]
  - Hypophagia [None]
